FAERS Safety Report 4478335-6 (Version None)
Quarter: 2004Q4

REPORT INFORMATION
  Report Type: 
  Country: None (occurrence: None)
  Receive Date: 20041018
  Receipt Date: 20041018
  Transmission Date: 20050328
  Serious: Yes (Other)
  Sender: FDA-Public Use
  Company Number: None

PATIENT
  Age: 52 Year
  Sex: Male
  Weight: 83.9154 kg

DRUGS (2)
  1. LIPITOR [Suspect]
     Indication: BLOOD CHOLESTEROL
     Dosage: ONCE / DAY
  2. NIACIN [Suspect]
     Indication: BLOOD TRIGLYCERIDES
     Dosage: ONCE / DAY

REACTIONS (1)
  - MYALGIA [None]
